FAERS Safety Report 9471252 (Version 1)
Quarter: 2013Q3

REPORT INFORMATION
  Report Type: Spontaneous
  Country: US (occurrence: US)
  Receive Date: 20130822
  Receipt Date: 20130822
  Transmission Date: 20140515
  Serious: Yes (Other)
  Sender: FDA-Public Use
  Company Number: US-ASTRAZENECA-2013SE63663

PATIENT
  Sex: Male

DRUGS (1)
  1. SYMBICORT [Suspect]
     Indication: COUGH
     Dosage: 160/4.5MCG 2 PUFFS BID
     Route: 055

REACTIONS (5)
  - Bronchitis [Unknown]
  - Bronchospasm [Unknown]
  - Productive cough [Unknown]
  - Cough [Unknown]
  - Drug prescribing error [Unknown]
